FAERS Safety Report 11462623 (Version 1)
Quarter: 2015Q3

REPORT INFORMATION
  Report Type: Spontaneous
  Country: US (occurrence: US)
  Receive Date: 20150831
  Receipt Date: 20150831
  Transmission Date: 20151125
  Serious: No
  Sender: FDA-Public Use
  Company Number: US-ELI_LILLY_AND_COMPANY-US201012004854

PATIENT
  Age: 67 Year
  Sex: Female

DRUGS (4)
  1. CYMBALTA [Suspect]
     Active Substance: DULOXETINE HYDROCHLORIDE
     Dosage: 30 MG, DAILY (1/D)
  2. VICODIN [Concomitant]
     Active Substance: ACETAMINOPHEN\HYDROCODONE BITARTRATE
     Indication: PAIN
  3. FENTANYL. [Concomitant]
     Active Substance: FENTANYL
     Dosage: 75 MG, UNK
  4. CYMBALTA [Suspect]
     Active Substance: DULOXETINE HYDROCHLORIDE
     Indication: MUSCULOSKELETAL PAIN
     Dosage: 60 MG, DAILY (1/D)

REACTIONS (7)
  - Gait disturbance [Unknown]
  - Adverse event [Recovered/Resolved]
  - Hypersomnia [Unknown]
  - Insomnia [Unknown]
  - Hyperhidrosis [Unknown]
  - Mental impairment [Unknown]
  - Drug ineffective [Recovered/Resolved]
